FAERS Safety Report 11903940 (Version 3)
Quarter: 2016Q3

REPORT INFORMATION
  Report Type: Report from Study
  Country: CA (occurrence: CA)
  Receive Date: 20160111
  Receipt Date: 20160713
  Transmission Date: 20161109
  Serious: Yes (Life-Threatening, Hospitalization, Other)
  Sender: FDA-Public Use
  Company Number: CA-ROCHE-CID000000002221936

PATIENT
  Age: 64 Year
  Sex: Male
  Weight: 85 kg

DRUGS (16)
  1. METHOTREXATE. [Concomitant]
     Active Substance: METHOTREXATE
  2. PLAQUENIL [Concomitant]
     Active Substance: HYDROXYCHLOROQUINE SULFATE
  3. AMITRIPTYLINE [Concomitant]
     Active Substance: AMITRIPTYLINE
  4. ACTEMRA [Suspect]
     Active Substance: TOCILIZUMAB
     Route: 042
     Dates: start: 20110412, end: 20120214
  5. FOLIC ACID. [Concomitant]
     Active Substance: FOLIC ACID
  6. ACTEMRA [Suspect]
     Active Substance: TOCILIZUMAB
     Indication: RHEUMATOID ARTHRITIS
     Route: 042
     Dates: start: 20110118, end: 20120214
  7. RALIVIA [Concomitant]
     Active Substance: TRAMADOL HYDROCHLORIDE
  8. ARAVA [Concomitant]
     Active Substance: LEFLUNOMIDE
  9. DIPHENHYDRAMINE HCL [Concomitant]
     Active Substance: DIPHENHYDRAMINE HYDROCHLORIDE
     Indication: PREMEDICATION
     Route: 048
     Dates: start: 20120430
  10. ACETAMINOPHEN. [Concomitant]
     Active Substance: ACETAMINOPHEN
     Indication: PREMEDICATION
     Route: 048
     Dates: start: 20120430
  11. ASA [Concomitant]
     Active Substance: ASPIRIN
  12. RITUXAN [Suspect]
     Active Substance: RITUXIMAB
     Indication: RHEUMATOID ARTHRITIS
     Dosage: MOST RECENT DOSE ON 04/JUL/2013
     Route: 042
     Dates: start: 20120430
  13. CELEBREX [Concomitant]
     Active Substance: CELECOXIB
  14. AVAPRO [Concomitant]
     Active Substance: IRBESARTAN
  15. NEXIUM [Concomitant]
     Active Substance: ESOMEPRAZOLE MAGNESIUM
  16. METHYLPREDNISOLONE. [Concomitant]
     Active Substance: METHYLPREDNISOLONE
     Indication: PREMEDICATION
     Route: 042
     Dates: start: 20120430

REACTIONS (13)
  - Blood pressure increased [Unknown]
  - Vertebral column mass [Unknown]
  - Oxygen saturation decreased [Unknown]
  - Painful respiration [Unknown]
  - Pulmonary mass [Not Recovered/Not Resolved]
  - Acne [Unknown]
  - Heart rate increased [Unknown]
  - Sinusitis [Not Recovered/Not Resolved]
  - Arthralgia [Unknown]
  - Lung disorder [Not Recovered/Not Resolved]
  - Myocardial infarction [Unknown]
  - Rheumatoid arthritis [Not Recovered/Not Resolved]
  - Hypotension [Unknown]

NARRATIVE: CASE EVENT DATE: 20121106
